FAERS Safety Report 8944252 (Version 2)
Quarter: 2013Q1

REPORT INFORMATION
  Report Type: Spontaneous
  Country: US (occurrence: US)
  Receive Date: 20121204
  Receipt Date: 20130205
  Transmission Date: 20140127
  Serious: Yes (Other)
  Sender: FDA-Public Use
  Company Number: US-AMGEN-USASP2012068621

PATIENT
  Age: 49 Year
  Sex: Female

DRUGS (3)
  1. ENBREL [Suspect]
     Indication: RHEUMATOID ARTHRITIS
     Dosage: 50 MG, QWK
     Route: 058
     Dates: start: 20121023
  2. PREDNISONE [Concomitant]
     Dosage: 5 MG, BID FOR A WEEK
     Route: 048
  3. VIMOVO [Concomitant]
     Dosage: 500-20 MG, BID
     Route: 048

REACTIONS (13)
  - Depression [Unknown]
  - Dizziness [Not Recovered/Not Resolved]
  - Fibromyalgia [Unknown]
  - Osteoarthritis [Unknown]
  - Osteopenia [Unknown]
  - Diabetes mellitus [Unknown]
  - Diarrhoea [Unknown]
  - Weight increased [Unknown]
  - Livedo reticularis [Unknown]
  - Goitre [Unknown]
  - Bone pain [Unknown]
  - Tenderness [Unknown]
  - Leukopenia [Unknown]
